FAERS Safety Report 10262138 (Version 2)
Quarter: 2014Q3

REPORT INFORMATION
  Report Type: Spontaneous
  Country: US (occurrence: US)
  Receive Date: 20140626
  Receipt Date: 20140702
  Transmission Date: 20150326
  Serious: No
  Sender: FDA-Public Use
  Company Number: US-009507513-1406USA012303

PATIENT
  Sex: Female

DRUGS (2)
  1. JANUVIA [Suspect]
     Active Substance: SITAGLIPTIN PHOSPHATE
     Indication: DIABETES MELLITUS
     Dosage: 100 MG, QD
     Route: 048
  2. HYDROCODONE [Concomitant]
     Active Substance: HYDROCODONE
     Indication: BACK DISORDER
     Dosage: UNK

REACTIONS (2)
  - Upper respiratory tract infection [Not Recovered/Not Resolved]
  - Pruritus [Not Recovered/Not Resolved]
